FAERS Safety Report 14305504 (Version 1)
Quarter: 2017Q4

REPORT INFORMATION
  Report Type: Report from Study
  Country: JP (occurrence: JP)
  Receive Date: 20171219
  Receipt Date: 20171219
  Transmission Date: 20180321
  Serious: Yes (Other)
  Sender: FDA-Public Use
  Company Number: JP-OTSUKA-JP-2012-10908

PATIENT
  Age: 31 Year
  Sex: Male
  Weight: 105 kg

DRUGS (30)
  1. SULPIRIDE [Concomitant]
     Active Substance: SULPIRIDE
     Indication: PRODUCT USED FOR UNKNOWN INDICATION
     Dosage: UNK
     Route: 065
  2. ARIPIPRAZOLE. [Suspect]
     Active Substance: ARIPIPRAZOLE
     Dosage: 18 MG, QD
     Route: 048
     Dates: start: 20080328, end: 20080410
  3. LANDSEN [Suspect]
     Active Substance: CLONAZEPAM
     Dosage: 3 MG, QD
     Route: 048
     Dates: start: 20081030
  4. HIRNAMIN [Suspect]
     Active Substance: PHENOTHIAZINE
     Indication: SCHIZOPHRENIA
     Dosage: 100 MG, QD
     Route: 048
     Dates: start: 20071210, end: 20080214
  5. ARIPIPRAZOLE. [Suspect]
     Active Substance: ARIPIPRAZOLE
     Dosage: 24 MG, QD
     Route: 048
     Dates: start: 20081211, end: 20090121
  6. ZOPICOOL [Suspect]
     Active Substance: ZOPICLONE
     Indication: SCHIZOPHRENIA
     Dosage: 7.5 MG, QD
     Route: 048
     Dates: start: 20070112
  7. MAGMITT [Suspect]
     Active Substance: MAGNESIUM OXIDE
     Dosage: 1980 MG, QD
     Route: 048
     Dates: start: 20080425
  8. MIYA-BM [Concomitant]
     Active Substance: CLOSTRIDIUM BUTYRICUM SPORES STRAIN M-55
     Indication: PRODUCT USED FOR UNKNOWN INDICATION
     Dosage: UNK
     Route: 065
  9. ARIPIPRAZOLE. [Suspect]
     Active Substance: ARIPIPRAZOLE
     Indication: SCHIZOPHRENIA
     Dosage: 6 MG, QD
     Route: 048
     Dates: start: 20080201, end: 20080228
  10. ARIPIPRAZOLE. [Suspect]
     Active Substance: ARIPIPRAZOLE
     Dosage: 12 MG, QD
     Route: 048
     Dates: start: 20080314, end: 20080327
  11. ARIPIPRAZOLE. [Suspect]
     Active Substance: ARIPIPRAZOLE
     Dosage: 24 MG, QD
     Route: 048
     Dates: start: 20080411, end: 20080626
  12. LANDSEN [Suspect]
     Active Substance: CLONAZEPAM
     Indication: SCHIZOPHRENIA
     Dosage: 3 MG, QD
     Route: 048
     Dates: start: 20070727, end: 20080117
  13. DEPAKENE [Suspect]
     Active Substance: VALPROIC ACID
     Indication: SCHIZOPHRENIA
     Dosage: 1200 MG, QD
     Route: 048
     Dates: start: 20071112
  14. MAGMITT [Suspect]
     Active Substance: MAGNESIUM OXIDE
     Indication: PRODUCT USED FOR UNKNOWN INDICATION
     Dosage: 990 MG, QD
     Route: 048
     Dates: start: 20080411, end: 20080424
  15. WINTERMIN [Suspect]
     Active Substance: PROMAZINE
     Indication: SCHIZOPHRENIA
     Dosage: 50 MG, QD
     Route: 048
     Dates: start: 20080606, end: 20081119
  16. RISPERDAL [Concomitant]
     Active Substance: RISPERIDONE
     Indication: PRODUCT USED FOR UNKNOWN INDICATION
     Dosage: UNK
     Route: 065
  17. ARIPIPRAZOLE. [Suspect]
     Active Substance: ARIPIPRAZOLE
     Dosage: 9 MG, QD
     Route: 048
     Dates: start: 20080229, end: 20080313
  18. ARIPIPRAZOLE. [Suspect]
     Active Substance: ARIPIPRAZOLE
     Dosage: 30 MG, QD
     Route: 048
     Dates: start: 20080627, end: 20081210
  19. ARIPIPRAZOLE. [Suspect]
     Active Substance: ARIPIPRAZOLE
     Dosage: 9 MG, QD
     Route: 048
     Dates: start: 20090423
  20. MYSLEE [Suspect]
     Active Substance: ZOLPIDEM TARTRATE
     Indication: SCHIZOPHRENIA
     Dosage: 10 MG, QD
     Route: 048
     Dates: start: 20061215
  21. VEGETAMIN A [Suspect]
     Active Substance: CHLORPROMAZINE HYDROCHLORIDE\PHENOBARBITAL\PROMETHAZINE
     Indication: SCHIZOPHRENIA
     Dosage: 2 DF, QD
     Route: 048
     Dates: start: 20061229
  22. LENDEM [Suspect]
     Active Substance: BROTIZOLAM
     Indication: SCHIZOPHRENIA
     Dosage: 0.5 MG, QD
     Route: 048
     Dates: start: 20070615
  23. VITAMEDIN [Concomitant]
     Active Substance: CYANOCOBALAMIN\PYRIDOXINE HYDROCHLORIDE\THIAMINE
     Indication: PRODUCT USED FOR UNKNOWN INDICATION
     Dosage: UNK
     Route: 065
  24. ARIPIPRAZOLE. [Suspect]
     Active Substance: ARIPIPRAZOLE
     Dosage: 12 MG, QD
     Route: 048
     Dates: start: 20090319, end: 20090422
  25. LANDSEN [Suspect]
     Active Substance: CLONAZEPAM
     Dosage: 4 MG, QD
     Route: 048
     Dates: start: 20080118, end: 20080717
  26. WINTERMIN [Suspect]
     Active Substance: PROMAZINE
     Dosage: 100 MG, QD
     Route: 048
     Dates: start: 20081120
  27. ARIPIPRAZOLE. [Suspect]
     Active Substance: ARIPIPRAZOLE
     Dosage: 18 MG, QD
     Route: 048
     Dates: start: 20090122, end: 20090318
  28. LANDSEN [Suspect]
     Active Substance: CLONAZEPAM
     Dosage: 3 MG, QD
     Route: 048
     Dates: start: 20080718, end: 20080807
  29. LANDSEN [Suspect]
     Active Substance: CLONAZEPAM
     Dosage: 4 MG, QD
     Route: 048
     Dates: start: 20080808, end: 20081029
  30. HIRNAMIN [Suspect]
     Active Substance: PHENOTHIAZINE
     Dosage: 200 MG, QD
     Route: 048
     Dates: start: 20080215

REACTIONS (4)
  - Diabetes mellitus [Unknown]
  - Glycosylated haemoglobin increased [Not Recovered/Not Resolved]
  - White blood cell count increased [Recovered/Resolved]
  - Blood glucose increased [Unknown]

NARRATIVE: CASE EVENT DATE: 20080718
